FAERS Safety Report 25994048 (Version 3)
Quarter: 2025Q4

REPORT INFORMATION
  Report Type: Report from Study
  Country: CA (occurrence: CA)
  Receive Date: 20251104
  Receipt Date: 20251202
  Transmission Date: 20260117
  Serious: Yes (Other)
  Sender: BIOCON
  Company Number: CA-MIMS-BCONMC-19372

PATIENT

DRUGS (1)
  1. HULIO [Suspect]
     Active Substance: ADALIMUMAB-FKJP
     Indication: Ankylosing spondylitis
     Dosage: 40 MILLIGRAM, BIWEEKLY
     Route: 058
     Dates: start: 20250117

REACTIONS (1)
  - Myocardial infarction [Unknown]
